FAERS Safety Report 22247912 (Version 4)
Quarter: 2024Q3

REPORT INFORMATION
  Report Type: Spontaneous
  Country: DE (occurrence: DE)
  Receive Date: 20230425
  Receipt Date: 20240828
  Transmission Date: 20241016
  Serious: Yes (Other)
  Sender: ALKEM
  Company Number: DE-ALKEM LABORATORIES LIMITED-DE-ALKEM-2023-04160

PATIENT
  Sex: Female

DRUGS (3)
  1. LACOSAMIDE [Suspect]
     Active Substance: LACOSAMIDE
     Indication: Seizure
     Dosage: 300 MILLIGRAM, QD, (INTERQUARTILE RANGE 200 -387.5 MILLIGRAM PER DAY)
     Route: 065
  2. LACOSAMIDE [Suspect]
     Active Substance: LACOSAMIDE
     Indication: Epilepsy
  3. LAMOTRIGINE [Suspect]
     Active Substance: LAMOTRIGINE
     Indication: Epilepsy
     Dosage: UNK
     Route: 065

REACTIONS (4)
  - Abortion spontaneous [Unknown]
  - Maternal exposure before pregnancy [Unknown]
  - Exposure during pregnancy [Unknown]
  - Maternal exposure during pregnancy [Unknown]
